FAERS Safety Report 6494036-7 (Version None)
Quarter: 2009Q4

REPORT INFORMATION
  Report Type: 
  Country: None (occurrence: None)
  Receive Date: 20091214
  Receipt Date: 20081212
  Transmission Date: 20100525
  Serious: No
  Sender: FDA-Public Use
  Company Number: US-BRISTOL-MYERS SQUIBB COMPANY-14442008

PATIENT
  Age: 55 Year
  Sex: Male
  Weight: 105 kg

DRUGS (5)
  1. ABILIFY [Suspect]
  2. ADVAIR DISKUS 100/50 [Concomitant]
  3. XYZAL [Concomitant]
  4. ANTIBIOTICS [Concomitant]
  5. PREDNISONE [Concomitant]

REACTIONS (1)
  - THERAPEUTIC RESPONSE UNEXPECTED [None]
